FAERS Safety Report 5230331-7 (Version None)
Quarter: 2007Q1

REPORT INFORMATION
  Report Type: 
  Country: None (occurrence: None)
  Receive Date: 20070206
  Receipt Date: 20070126
  Transmission Date: 20070707
  Serious: Yes (Life-Threatening, Hospitalization)
  Sender: FDA-Public Use
  Company Number: GB-PFIZER INC-2007007675

PATIENT
  Sex: Male
  Weight: 110 kg

DRUGS (1)
  1. GENOTROPIN [Suspect]
     Indication: HYPOPITUITARISM
     Route: 058

REACTIONS (4)
  - CONDITION AGGRAVATED [None]
  - INTRACRANIAL HYPOTENSION [None]
  - MENINGITIS [None]
  - PITUITARY CYST [None]
